FAERS Safety Report 9314980 (Version 1)
Quarter: 2013Q2

REPORT INFORMATION
  Report Type: Spontaneous
  Country: US (occurrence: US)
  Receive Date: 20130529
  Receipt Date: 20130529
  Transmission Date: 20140414
  Serious: Yes (Other)
  Sender: FDA-Public Use
  Company Number: US-GLAXOSMITHKLINE-A1024155A

PATIENT
  Age: 82 Year
  Sex: Female

DRUGS (3)
  1. VENTOLIN HFA [Suspect]
     Indication: DYSPNOEA
     Dosage: 1PUFF FOUR TIMES PER DAY
     Route: 055
     Dates: start: 20130329
  2. AZITHROMYCIN [Concomitant]
  3. CEFDINIR [Concomitant]

REACTIONS (2)
  - Pneumonia [Recovered/Resolved]
  - Drug administration error [Unknown]
